FAERS Safety Report 5129854-0 (Version None)
Quarter: 2006Q4

REPORT INFORMATION
  Report Type: 
  Country: None (occurrence: None)
  Receive Date: 20061012
  Receipt Date: 20060929
  Transmission Date: 20070319
  Serious: Yes (Hospitalization)
  Sender: FDA-Public Use
  Company Number: SU-2006-005507

PATIENT
  Age: 73 Year
  Sex: Female

DRUGS (1)
  1. BENICAR HCT [Suspect]
     Indication: HYPERTENSION
     Dosage: 20.125 MG QD PO
     Route: 048

REACTIONS (4)
  - COUGH [None]
  - DYSPNOEA [None]
  - LARYNGEAL OEDEMA [None]
  - PARAESTHESIA ORAL [None]
